FAERS Safety Report 8757867 (Version 1)
Quarter: 2012Q4

REPORT INFORMATION
  Report Type: 
  Country: US (occurrence: US)
  Receive Date: 20120828
  Receipt Date: 20120828
  Transmission Date: 20130627
  Serious: Yes (Hospitalization)
  Sender: FDA-Public Use
  Company Number: US-SHIRE-ALL1-2012-04005

PATIENT
  Age: 60 Year
  Sex: Female
  Weight: 89.8 kg

DRUGS (2)
  1. PENTASA [Suspect]
     Indication: CROHN^S DISEASE
     Dosage: UNK, 3x/day:tid
     Route: 048
     Dates: start: 20111215, end: 201204
  2. VALIUM /00017001/ [Concomitant]
     Indication: ANXIETY
     Dosage: UNK UNK, Unknown
     Route: 048
     Dates: start: 2010

REACTIONS (3)
  - Diverticulitis [Unknown]
  - Wound infection [Recovered/Resolved]
  - Off label use [Recovered/Resolved]
